FAERS Safety Report 7180310-8 (Version None)
Quarter: 2010Q4

REPORT INFORMATION
  Report Type: 
  Country: None (occurrence: None)
  Receive Date: 20101221
  Receipt Date: 20101210
  Transmission Date: 20110411
  Serious: Yes (Congenital Anomaly)
  Sender: FDA-Public Use
  Company Number: A0680657A

PATIENT
  Sex: Female

DRUGS (7)
  1. PAXIL CR [Suspect]
     Indication: DEPRESSION
     Dosage: 40MG PER DAY
     Dates: start: 20050901, end: 20051101
  2. NOVOLOG [Concomitant]
     Dosage: 25U TWICE PER DAY
     Dates: start: 20040101
  3. DEPAKOTE [Concomitant]
     Indication: DEPRESSION
     Dosage: 500MG AT NIGHT
     Dates: start: 20040101, end: 20060101
  4. RISPERDAL [Concomitant]
     Indication: DEPRESSION
     Dosage: 2MG AT NIGHT
     Dates: start: 20030101, end: 20050101
  5. LEXAPRO [Concomitant]
     Indication: DEPRESSION
     Dates: start: 20040101, end: 20050101
  6. PRENATAL VITAMINS [Concomitant]
  7. MAGNESIUM SULFATE [Concomitant]

REACTIONS (6)
  - ATRIAL SEPTAL DEFECT [None]
  - CONGENITAL ANOMALY [None]
  - DRUG EXPOSURE DURING PREGNANCY [None]
  - MULTIPLE CONGENITAL ABNORMALITIES [None]
  - PULMONARY VALVE STENOSIS CONGENITAL [None]
  - VENTRICULAR SEPTAL DEFECT [None]
